FAERS Safety Report 5066399-0 (Version None)
Quarter: 2006Q3

REPORT INFORMATION
  Report Type: 
  Country: None (occurrence: None)
  Receive Date: 20060731
  Receipt Date: 20060731
  Transmission Date: 20061208
  Serious: Yes (Death, Other)
  Sender: FDA-Public Use
  Company Number: None

PATIENT
  Age: 40 Year
  Sex: Female

DRUGS (2)
  1. METHIMAZOLE [Suspect]
     Indication: HYPERTHYROIDISM
  2. METOPROLOL TARTRATE [Concomitant]

REACTIONS (9)
  - GASTROINTESTINAL NECROSIS [None]
  - GENITAL PAIN FEMALE [None]
  - GRANULOCYTOPENIA [None]
  - HYPOTENSION [None]
  - OEDEMA GENITAL [None]
  - PHARYNGOLARYNGEAL PAIN [None]
  - SEPTIC SHOCK [None]
  - SOFT TISSUE INFECTION [None]
  - TACHYCARDIA [None]
